FAERS Safety Report 13493782 (Version 3)
Quarter: 2017Q3

REPORT INFORMATION
  Report Type: Report from Study
  Country: JP (occurrence: JP)
  Receive Date: 20170427
  Receipt Date: 20170810
  Transmission Date: 20171127
  Serious: Yes (Hospitalization, Other)
  Sender: FDA-Public Use
  Company Number: JP-GILEAD-2017-0269526

PATIENT
  Age: 50 Year
  Sex: Female

DRUGS (16)
  1. OMEPRAL                            /00661201/ [Concomitant]
     Active Substance: OMEPRAZOLE
     Dosage: UNK
     Dates: start: 20111129, end: 20130120
  2. PREDNISOLONE. [Concomitant]
     Active Substance: PREDNISOLONE
     Indication: MIXED CONNECTIVE TISSUE DISEASE
     Dosage: UNK
     Dates: start: 20120528
  3. FOSAMAC [Concomitant]
     Active Substance: ALENDRONATE SODIUM
     Indication: OSTEOPOROSIS PROPHYLAXIS
     Route: 048
     Dates: start: 20120528
  4. NEXIUM [Concomitant]
     Active Substance: ESOMEPRAZOLE MAGNESIUM
     Indication: PROPHYLAXIS AGAINST GASTROINTESTINAL ULCER
     Dosage: UNK
     Dates: start: 20130121
  5. OMEPRAL                            /00661201/ [Concomitant]
     Active Substance: OMEPRAZOLE
     Indication: PROPHYLAXIS AGAINST GASTROINTESTINAL ULCER
     Dosage: UNK
     Dates: start: 20111129, end: 20130120
  6. PROCYLIN [Concomitant]
     Active Substance: BERAPROST SODIUM
     Indication: SKIN ULCER
     Route: 048
     Dates: end: 20120528
  7. MEDROL [Concomitant]
     Active Substance: METHYLPREDNISOLONE
     Indication: MIXED CONNECTIVE TISSUE DISEASE
     Route: 048
     Dates: end: 20120528
  8. PROGRAF [Concomitant]
     Active Substance: TACROLIMUS\TACROLIMUS ANHYDROUS
     Indication: MIXED CONNECTIVE TISSUE DISEASE
     Dosage: UNK
     Route: 048
     Dates: end: 20130702
  9. OMEPRAL                            /00661201/ [Concomitant]
     Active Substance: OMEPRAZOLE
     Indication: PROPHYLAXIS AGAINST GASTROINTESTINAL ULCER
     Dosage: UNK
     Route: 048
     Dates: start: 20111129
  10. BAKTAR [Concomitant]
     Active Substance: SULFAMETHOXAZOLE\TRIMETHOPRIM
     Indication: PROPHYLAXIS
     Dosage: UNK
     Dates: start: 20130311, end: 20130401
  11. AMBRISENTAN [Suspect]
     Active Substance: AMBRISENTAN
     Indication: SKIN ULCER
     Dosage: 2.5 MG, QD
     Route: 048
     Dates: start: 20111102, end: 20130710
  12. LIPLE [Concomitant]
     Active Substance: ALPROSTADIL
     Indication: PERIPHERAL VASCULAR DISORDER
     Dosage: UNK
     Dates: end: 20130508
  13. LIPLE [Concomitant]
     Active Substance: ALPROSTADIL
     Dosage: UNK
     Dates: start: 20091104, end: 20130508
  14. OPALMON [Concomitant]
     Active Substance: LIMAPROST
     Indication: PERIPHERAL VASCULAR DISORDER
     Dosage: UNK
  15. OPALMON [Concomitant]
     Active Substance: LIMAPROST
     Dosage: UNK
     Dates: start: 20130121
  16. ALLELOCK [Concomitant]
     Active Substance: OLOPATADINE HYDROCHLORIDE
     Indication: ECZEMA
     Dosage: UNK
     Dates: start: 20130707

REACTIONS (5)
  - Swelling face [Recovering/Resolving]
  - Off label use [Recovered/Resolved]
  - Erythema [Recovering/Resolving]
  - Toxic skin eruption [Recovering/Resolving]
  - Myositis [Recovered/Resolved]

NARRATIVE: CASE EVENT DATE: 20111102
